FAERS Safety Report 21659998 (Version 1)
Quarter: 2022Q4

REPORT INFORMATION
  Report Type: Spontaneous
  Country: FR (occurrence: FR)
  Receive Date: 20221130
  Receipt Date: 20221130
  Transmission Date: 20230113
  Serious: Yes (Hospitalization, Other)
  Sender: FDA-Public Use
  Company Number: FR-STRIDES ARCOLAB LIMITED-2022SP015993

PATIENT
  Age: 41 Year
  Sex: Female
  Weight: 85 kg

DRUGS (20)
  1. DOXORUBICIN [Suspect]
     Active Substance: DOXORUBICIN
     Indication: Hodgkin^s disease
     Dosage: 25 MILLIGRAM/SQ. METER, CYCLICAL (TOTAL DOSE: 50MG WITH GLUCOSE 5% 20ML (SYRINGE))
     Route: 042
     Dates: start: 20171108
  2. DOXORUBICIN [Suspect]
     Active Substance: DOXORUBICIN
     Dosage: UNK, CYCLICAL (6 CYCLE)
     Route: 042
  3. AMOXICILLIN [Suspect]
     Active Substance: AMOXICILLIN
     Indication: Product used for unknown indication
     Dosage: UNK
     Route: 065
  4. PREDNISOLONE [Suspect]
     Active Substance: PREDNISOLONE
     Indication: Hodgkin^s disease
     Dosage: 80 MILLIGRAM PER DAY
     Route: 065
  5. PREDNISOLONE [Suspect]
     Active Substance: PREDNISOLONE
     Dosage: 40 MILLIGRAM PER DAY (40MG PER DAY FROM THE DIAGNOSIS UNTIL 1 WEEK AFTER THE FIRST ABVD)
     Route: 065
  6. BLEOMYCIN [Suspect]
     Active Substance: BLEOMYCIN SULFATE
     Indication: Hodgkin^s disease
     Dosage: 10 MILLIGRAM/SQ. METER, CYCLICAL (TOTAL DOSE: 19.8MG WITH SODIUM CHLORIDE 0.9% 20ML (SYRINGE))
     Route: 042
     Dates: start: 20171108
  7. BLEOMYCIN [Suspect]
     Active Substance: BLEOMYCIN SULFATE
     Dosage: UNK, CYCLICAL (6 CYCLE)
     Route: 042
  8. VINBLASTINE [Suspect]
     Active Substance: VINBLASTINE
     Indication: Hodgkin^s disease
     Dosage: 6 MILLIGRAM/SQ. METER, CYCLICAL (TOTAL DOSE: 10 MG WITH SODIUM CHLORIDE 0.9% 20ML (BAG))
     Route: 042
     Dates: start: 20171108
  9. VINBLASTINE [Suspect]
     Active Substance: VINBLASTINE
     Dosage: UNK, CYCLICAL (6 CYCLE)
     Route: 042
  10. DACARBAZINE [Suspect]
     Active Substance: DACARBAZINE
     Indication: Hodgkin^s disease
     Dosage: 375 MILLIGRAM/SQ. METER, CYCLICAL (TOTAL DOSE: 750MG WITH GLUCOSE 5% 20ML (BAG))
     Route: 065
     Dates: start: 20171108
  11. DACARBAZINE [Suspect]
     Active Substance: DACARBAZINE
     Dosage: UNK, CYCLICAL (6 CYCLE)
     Route: 065
  12. DEXAMETHASONE [Suspect]
     Active Substance: DEXAMETHASONE
     Indication: Hodgkin^s disease
     Dosage: 10 MILLIGRAM, CYCLICAL (TOTAL DOSE: 10MG)
     Route: 042
     Dates: start: 20171108
  13. ONDANSETRON [Suspect]
     Active Substance: ONDANSETRON
     Indication: Hodgkin^s disease
     Dosage: 8 MILLIGRAM, BID
     Route: 042
     Dates: start: 20171108
  14. ENOXAPARIN [Suspect]
     Active Substance: ENOXAPARIN
     Indication: Product used for unknown indication
     Dosage: 4000 INTERNATIONAL UNIT, BID
     Route: 065
  15. LANSOPRAZOLE [Suspect]
     Active Substance: LANSOPRAZOLE
     Indication: Product used for unknown indication
     Dosage: 30 MILLIGRAM, QD
     Route: 065
  16. VALACYCLOVIR HYDROCHLORIDE [Suspect]
     Active Substance: VALACYCLOVIR HYDROCHLORIDE
     Indication: Product used for unknown indication
     Dosage: 500 MILLIGRAM, QD
     Route: 065
  17. DEXTROSE [Suspect]
     Active Substance: DEXTROSE
     Indication: Vehicle solution use
     Dosage: 20 MILLILITER, CYCLICAL (WITH DOXORUBICIN (SYRINGE))
     Route: 042
     Dates: start: 20171108
  18. DEXTROSE [Suspect]
     Active Substance: DEXTROSE
     Dosage: 20 MILLILITER, CYCLICAL (WITH DACARBAZINE (BAG) INFUSION ROUTE)
     Route: 065
     Dates: start: 20171108
  19. SODIUM CHLORIDE [Suspect]
     Active Substance: SODIUM CHLORIDE
     Indication: Vehicle solution use
     Dosage: 20 MILLILITER, CYCLICAL (WITH BLEOMYCIN; SYRINGE)
     Route: 042
     Dates: start: 20171108
  20. SODIUM CHLORIDE [Suspect]
     Active Substance: SODIUM CHLORIDE
     Dosage: 20 MILLILITER, CYCLICAL (WITH VINBLASTINE; BAG)
     Route: 042
     Dates: start: 20171108

REACTIONS (3)
  - Premature delivery [Unknown]
  - Preterm premature rupture of membranes [Unknown]
  - Maternal exposure during pregnancy [Unknown]
